FAERS Safety Report 17279042 (Version 1)
Quarter: 2020Q1

REPORT INFORMATION
  Report Type: Spontaneous
  Country: RO (occurrence: US)
  Receive Date: 20200116
  Receipt Date: 20200116
  Transmission Date: 20200409
  Serious: No
  Sender: FDA-Public Use
  Company Number: RO-LEADIANT BIOSCIENCES INC-2019STPI000045

PATIENT
  Sex: Male

DRUGS (1)
  1. ABELCET [Suspect]
     Active Substance: AMPHOTERICIN B\DIMYRISTOYLPHOSPHATIDYLCHOLINE, DL-\DIMYRISTOYLPHOSPHATIDYLGLYCEROL, DL-
     Indication: LEISHMANIASIS
     Dosage: 40 MG, QD

REACTIONS (1)
  - Renal mass [Unknown]
